FAERS Safety Report 21128724 (Version 2)
Quarter: 2022Q3

REPORT INFORMATION
  Report Type: Spontaneous
  Country: US (occurrence: None)
  Receive Date: 20220725
  Receipt Date: 20220818
  Transmission Date: 20221027
  Serious: No
  Sender: FDA-Public Use
  Company Number: 2022A246643

PATIENT
  Sex: Female
  Weight: 70.3 kg

DRUGS (1)
  1. FASENRA [Suspect]
     Active Substance: BENRALIZUMAB
     Indication: Asthma
     Dosage: SWITCHED FROM THE LOADING DOSE OF EVERY 4 WEEKS, TO THE MAINTENANCE DOSE OF EVERY 8 WEEKS
     Route: 058

REACTIONS (1)
  - Anaemia [Unknown]
